FAERS Safety Report 9862357 (Version 1)
Quarter: 2014Q1

REPORT INFORMATION
  Report Type: Spontaneous
  Country: TR (occurrence: TR)
  Receive Date: 20140203
  Receipt Date: 20140203
  Transmission Date: 20141002
  Serious: Yes (Hospitalization, Other)
  Sender: FDA-Public Use
  Company Number: TR-ASTELLAS-2013US009604

PATIENT
  Age: 41 Year
  Sex: Female

DRUGS (9)
  1. AMBISOME [Suspect]
     Indication: ZYGOMYCOSIS
     Dosage: 3 MG/KG, UID/QD
     Route: 065
     Dates: start: 20041225, end: 20050212
  2. AMBISOME [Suspect]
     Dosage: 5 MG/KG, UID/QD
     Route: 065
     Dates: start: 20050222, end: 200505
  3. AMBISOME [Suspect]
     Dosage: 5 MG/KG, UID/QD
     Route: 065
     Dates: start: 200505
  4. AMPHOTERICIN B [Concomitant]
     Indication: PRODUCT USED FOR UNKNOWN INDICATION
     Dosage: UNK ML, QID
     Route: 065
  5. MEROPENEM [Concomitant]
     Indication: PRODUCT USED FOR UNKNOWN INDICATION
     Dosage: UNK
     Route: 065
     Dates: start: 20041225
  6. CASPOFUNGIN [Concomitant]
     Indication: PRODUCT USED FOR UNKNOWN INDICATION
     Dosage: 70 MG, LOADING DOSE
     Dates: start: 20050226
  7. CASPOFUNGIN [Concomitant]
     Dosage: 50 MG, MAINTENANCE DOSE
     Route: 042
  8. CIPROFLOXACIN [Concomitant]
     Indication: PRODUCT USED FOR UNKNOWN INDICATION
     Dosage: 400 MG, X2
     Route: 065
     Dates: start: 20050226
  9. INSULIN [Concomitant]
     Indication: PRODUCT USED FOR UNKNOWN INDICATION
     Dosage: UNK
     Route: 065

REACTIONS (3)
  - Drug ineffective [Unknown]
  - Hepatosplenomegaly [Unknown]
  - Abdominal pain [Unknown]
